FAERS Safety Report 15341671 (Version 1)
Quarter: 2018Q3

REPORT INFORMATION
  Report Type: Spontaneous
  Country: FR (occurrence: FR)
  Receive Date: 20180901
  Receipt Date: 20180901
  Transmission Date: 20181010
  Serious: Yes (Hospitalization)
  Sender: FDA-Public Use
  Company Number: FR-SUN PHARMACEUTICAL INDUSTRIES LTD-2018RR-178331

PATIENT
  Age: 62 Year
  Sex: Male
  Weight: 76 kg

DRUGS (6)
  1. ORAMORPH [Concomitant]
     Active Substance: MORPHINE SULFATE
     Indication: PRODUCT USED FOR UNKNOWN INDICATION
     Dosage: ()
     Route: 065
  2. ERBITUX [Concomitant]
     Active Substance: CETUXIMAB
     Indication: LARYNGEAL CANCER
     Dosage: ()
     Route: 042
     Dates: start: 20180307, end: 20180425
  3. PARACETAMOL [Suspect]
     Active Substance: ACETAMINOPHEN
     Indication: PAIN
     Dosage: ()
     Route: 048
     Dates: start: 20180301
  4. IXPRIM [Suspect]
     Active Substance: ACETAMINOPHEN\TRAMADOL HYDROCHLORIDE
     Indication: PAIN
     Dosage: ()
     Route: 048
     Dates: start: 201804
  5. CODEINE [Concomitant]
     Active Substance: CODEINE
     Indication: PAIN
     Dosage: ()
     Route: 048
     Dates: start: 201804
  6. DUROGESIC [Concomitant]
     Active Substance: FENTANYL
     Indication: PRODUCT USED FOR UNKNOWN INDICATION
     Dosage: ()
     Route: 065

REACTIONS (2)
  - Intentional product misuse [Recovered/Resolved]
  - Hepatitis acute [Recovering/Resolving]

NARRATIVE: CASE EVENT DATE: 201803
